FAERS Safety Report 7337318-9 (Version None)
Quarter: 2011Q1

REPORT INFORMATION
  Report Type: 
  Country: None (occurrence: None)
  Receive Date: 20110222
  Receipt Date: 20110210
  Transmission Date: 20110831
  Serious: Yes (Hospitalization)
  Sender: FDA-Public Use
  Company Number: UTC-005205

PATIENT
  Age: 57 Year
  Sex: Female

DRUGS (1)
  1. REMODULIN [Suspect]
     Dosage: 0.36 ML (0.015 ML, 1 IN 1 HR), SUBCUTANEOUS
     Route: 058
     Dates: start: 20110128

REACTIONS (2)
  - GASTROINTESTINAL DISORDER [None]
  - FATIGUE [None]
